FAERS Safety Report 6793942-3 (Version None)
Quarter: 2010Q2

REPORT INFORMATION
  Report Type: 
  Country: None (occurrence: None)
  Receive Date: 20100624
  Receipt Date: 20070928
  Transmission Date: 20101027
  Serious: No
  Sender: FDA-Public Use
  Company Number: US-PFIZER INC-ENC200700172

PATIENT
  Sex: Female

DRUGS (5)
  1. ARGATROBAN [Suspect]
     Indication: HEPARIN-INDUCED THROMBOCYTOPENIA
     Dosage: 0.5 MCG/KG/MIN,FREQUENCY:  UNK
     Dates: start: 20070928, end: 20070928
  2. AZITHROMYCIN [Concomitant]
  3. PANTOPRAZOLE [Concomitant]
  4. FUROSEMIDE [Concomitant]
  5. FENTANYL [Concomitant]

REACTIONS (1)
  - COAGULATION TIME PROLONGED [None]
